FAERS Safety Report 11349853 (Version 3)
Quarter: 2015Q3

REPORT INFORMATION
  Report Type: Spontaneous
  Country: JP (occurrence: JP)
  Receive Date: 20150807
  Receipt Date: 20150901
  Transmission Date: 20151125
  Serious: Yes (Other)
  Sender: FDA-Public Use
  Company Number: JP-UCBSA-2015024590

PATIENT
  Age: 1 Year
  Sex: Male

DRUGS (7)
  1. KEPPRA [Suspect]
     Active Substance: LEVETIRACETAM
     Indication: EPILEPSY
     Dosage: 180 MG, ONCE DAILY (QD)
     Route: 048
     Dates: start: 20150715, end: 20150715
  2. FOSPHENYTOIN SODIUM. [Concomitant]
     Active Substance: FOSPHENYTOIN SODIUM
     Indication: PRODUCT USED FOR UNKNOWN INDICATION
     Dosage: UNK
     Dates: start: 20150608, end: 2015
  3. KEPPRA [Suspect]
     Active Substance: LEVETIRACETAM
     Indication: OFF LABEL USE
  4. ALEVIATIN [Concomitant]
     Active Substance: PHENYTOIN SODIUM
     Indication: COMPLEX PARTIAL SEIZURES
     Dosage: DAILY DOSE: 50 MG
     Route: 048
     Dates: start: 20150611, end: 20150801
  5. PHENOBAL [Concomitant]
     Active Substance: PHENOBARBITAL
     Dosage: DAILY DOSE: 70 MG
     Route: 048
     Dates: start: 20150704
  6. PHENOBARBITAL SODIUM. [Concomitant]
     Active Substance: PHENOBARBITAL SODIUM
     Indication: PRODUCT USED FOR UNKNOWN INDICATION
     Dosage: UNK
     Dates: start: 20150611, end: 2015
  7. PHENOBAL [Concomitant]
     Active Substance: PHENOBARBITAL
     Indication: SEIZURE CLUSTER
     Dosage: DAILY DOSE : 45 MG
     Route: 048
     Dates: start: 20150615, end: 20150703

REACTIONS (2)
  - Off label use [Unknown]
  - Rash [Recovered/Resolved]

NARRATIVE: CASE EVENT DATE: 20150715
